FAERS Safety Report 25706633 (Version 1)
Quarter: 2025Q3

REPORT INFORMATION
  Report Type: Spontaneous
  Country: US (occurrence: None)
  Receive Date: 20250819
  Receipt Date: 20250819
  Transmission Date: 20251020
  Serious: Yes (unspecified)
  Sender: FDA-CTU
  Company Number: None

PATIENT
  Age: 44 Year
  Sex: Female

DRUGS (1)
  1. IRON SUCROSE [Suspect]
     Active Substance: IRON SUCROSE
     Indication: Anaemia
     Route: 042
     Dates: start: 20250722, end: 20250722

REACTIONS (4)
  - Adverse drug reaction [None]
  - Back pain [None]
  - Dyspepsia [None]
  - Drug hypersensitivity [None]

NARRATIVE: CASE EVENT DATE: 20250722
